FAERS Safety Report 8980100 (Version 2)
Quarter: 2013Q1

REPORT INFORMATION
  Report Type: Spontaneous
  Country: JP (occurrence: JP)
  Receive Date: 20121221
  Receipt Date: 20130129
  Transmission Date: 20140127
  Serious: No
  Sender: FDA-Public Use
  Company Number: PHHY2012JP117912

PATIENT
  Age: 82 Year
  Sex: Male

DRUGS (11)
  1. RIVASTIGMIN [Suspect]
     Indication: DEMENTIA ALZHEIMER^S TYPE
     Dosage: 4.5 MG, DAILY
     Route: 062
     Dates: start: 20120921, end: 20121019
  2. RIVASTIGMIN [Suspect]
     Dosage: 9 MG, DAILY
     Route: 062
     Dates: start: 20121019, end: 20121210
  3. URSO [Concomitant]
     Dosage: UNK UKN, UNK
     Dates: start: 20090417
  4. GASMOTIN [Concomitant]
     Dosage: UNK UKN, UNK
  5. DIOVAN [Concomitant]
     Dosage: UNK UKN, UNK
     Dates: start: 20090417
  6. URIEF [Concomitant]
     Dosage: UNK UKN, UNK
  7. AMLODIN [Concomitant]
     Dosage: UNK UKN, UNK
     Dates: start: 20090417
  8. WARFARIN [Concomitant]
     Dosage: UNK UKN, UNK
     Dates: start: 20090417
  9. PROTECADIN [Concomitant]
     Dosage: UNK UKN, UNK
     Dates: start: 20090417
  10. NEO-MINOPHAGEN C [Concomitant]
     Dosage: UNK UKN, UNK
     Dates: start: 20090417
  11. LUPRAC [Concomitant]
     Dosage: UNK UKN, UNK
     Dates: start: 20090417

REACTIONS (1)
  - Blood cholinesterase decreased [Unknown]
